FAERS Safety Report 3433191 (Version 1)
Quarter: 2020Q3

REPORT INFORMATION
  Report Type: Spontaneous
  Country: FR (occurrence: None)
  Receive Date: 20000209
  Receipt Date: 20000209
  Transmission Date: 20201104
  Serious: Yes (Death)
  Sender: FDA-Public Use
  Company Number: OOP-056-0086657-00 (0)

PATIENT
  Age: 78 Year
  Sex: Male
  Weight: 52 kg

DRUGS (10)
  1. FERROUS SULFATE. [Suspect]
     Active Substance: FERROUS SULFATE
     Dosage: 2 DOSAGE FORMS, 1 IN 1 D, PER ORAL
     Route: 048
     Dates: start: 19990614, end: 19991116
  2. FUROSEMIDE (FUROSEMIDE) [Concomitant]
     Active Substance: FUROSEMIDE
  3. FLUTOXIED [Concomitant]
  4. OMEPRAZOLE. [Concomitant]
     Active Substance: OMEPRAZOLE
  5. AMIODARONE HYDROCHLORIDE. [Concomitant]
     Active Substance: AMIODARONE HYDROCHLORIDE
  6. AMBROXOL [Concomitant]
     Active Substance: AMBROXOL
  7. METHYLPREDNISOOLONE (METHYLPREDNISOLONE [Concomitant]
  8. FLUINDIONE [Concomitant]
     Active Substance: FLUINDIONE
  9. SALMETEROL (SALMETEROL) [Concomitant]
  10. MIDAZOLAM HYDROCHLORIDE. [Concomitant]
     Active Substance: MIDAZOLAM HYDROCHLORIDE

REACTIONS (8)
  - Foreign body aspiration [None]
  - Haemoptysis [None]
  - Sudden death [None]
  - Necrosis [None]
  - Respiratory disorder [None]
  - Bronchitis [None]
  - Chest X-ray abnormal [None]
  - Gastrooesophageal reflux disease [None]

NARRATIVE: CASE EVENT DATE: 19991116
